FAERS Safety Report 7095167-3 (Version None)
Quarter: 2010Q4

REPORT INFORMATION
  Report Type: 
  Country: None (occurrence: None)
  Receive Date: 20101109
  Receipt Date: 20101109
  Transmission Date: 20110411
  Serious: Yes (Other)
  Sender: FDA-Public Use
  Company Number: None

PATIENT
  Age: 77 Year
  Sex: Male

DRUGS (11)
  1. LETAIRIS [Suspect]
     Indication: PULMONARY ARTERIAL HYPERTENSION
     Dosage: 5MG DAILY ORAL
     Route: 048
     Dates: start: 20090723, end: 20090803
  2. ATENOLOL [Concomitant]
  3. LISINOPRIL [Concomitant]
  4. ASPIRIN [Concomitant]
  5. SIMVASTATIN [Concomitant]
  6. FINASTERIDE [Concomitant]
  7. AMITRIPTYLINE [Concomitant]
  8. CITALOPRAM [Concomitant]
  9. NASAREL [Concomitant]
  10. OMEPRAZOLE [Concomitant]
  11. TIOTROPIUM [Concomitant]

REACTIONS (2)
  - DYSPNOEA [None]
  - FATIGUE [None]
